FAERS Safety Report 6580127-9 (Version None)
Quarter: 2010Q1

REPORT INFORMATION
  Report Type: 
  Country: None (occurrence: None)
  Receive Date: 20100212
  Receipt Date: 20100205
  Transmission Date: 20100710
  Serious: Yes (Other)
  Sender: FDA-Public Use
  Company Number: ES-PFIZER INC-2010015220

PATIENT
  Age: 52 Year
  Sex: Male
  Weight: 88 kg

DRUGS (3)
  1. ZARATOR [Suspect]
     Indication: HYPERCHOLESTEROLAEMIA
     Dosage: 40 MG, 1X/DAY
     Route: 048
     Dates: start: 20060101, end: 20090101
  2. LOPID [Interacting]
     Indication: HYPERCHOLESTEROLAEMIA
     Dosage: 900 MG, 1X/DAY
     Route: 048
     Dates: start: 20070101, end: 20090101
  3. TENORMIN [Concomitant]
     Indication: HYPERTENSION
     Dosage: UNK
     Route: 048
     Dates: start: 20050101

REACTIONS (2)
  - DERMATOFIBROSARCOMA [None]
  - DRUG INTERACTION [None]
